FAERS Safety Report 5284212-3 (Version None)
Quarter: 2007Q1

REPORT INFORMATION
  Report Type: 
  Country: None (occurrence: None)
  Receive Date: 20070330
  Receipt Date: 20070330
  Transmission Date: 20070707
  Serious: No
  Sender: FDA-Public Use
  Company Number: None

PATIENT
  Sex: Male
  Weight: 60.3284 kg

DRUGS (2)
  1. FLUCONAZOLE [Suspect]
     Indication: HERPES VIRUS INFECTION
     Dosage: 20MG BID
  2. FLUCONAZOLE [Suspect]
     Indication: HIV INFECTION
     Dosage: 20MG BID

REACTIONS (2)
  - NAUSEA [None]
  - PHARMACEUTICAL PRODUCT COMPLAINT [None]
